FAERS Safety Report 19615169 (Version 1)
Quarter: 2021Q3

REPORT INFORMATION
  Report Type: Spontaneous
  Country: US (occurrence: US)
  Receive Date: 20210727
  Receipt Date: 20210727
  Transmission Date: 20211014
  Serious: No
  Sender: FDA-Public Use
  Company Number: US-TEVA-2021-US-1936248

PATIENT

DRUGS (1)
  1. LORAZEPAM TEVA [Suspect]
     Active Substance: LORAZEPAM
     Route: 065

REACTIONS (8)
  - Agitation [Recovered/Resolved]
  - Insomnia [Recovered/Resolved]
  - Product quality issue [Unknown]
  - Blood pressure increased [Recovered/Resolved]
  - Withdrawal syndrome [Recovered/Resolved]
  - Fatigue [Recovered/Resolved]
  - Irritability [Recovered/Resolved]
  - Drug ineffective [Unknown]
